FAERS Safety Report 6568760-1 (Version None)
Quarter: 2010Q1

REPORT INFORMATION
  Report Type: 
  Country: None (occurrence: None)
  Receive Date: 20100203
  Receipt Date: 20100201
  Transmission Date: 20100710
  Serious: Yes (Hospitalization)
  Sender: FDA-Public Use
  Company Number: GXKR2009DE02407

PATIENT
  Age: 68 Year
  Sex: Male
  Weight: 79 kg

DRUGS (7)
  1. ASS 100 HEXAL (NGX) [Interacting]
     Indication: CORONARY ARTERY DISEASE
     Dosage: 100 MG, QD
     Route: 048
     Dates: start: 20080101, end: 20080908
  2. FALITHROM (NGX) [Interacting]
     Indication: ATRIAL FIBRILLATION
     Dosage: 3 MG, QD
     Route: 048
     Dates: start: 20080501, end: 20080904
  3. SIMVASTATIN (NGX) [Suspect]
     Indication: HYPERLIPIDAEMIA
     Dosage: 20 MG, UNK
     Route: 048
  4. AMLODIPINE [Concomitant]
     Route: 048
  5. METOPROLOL SUCCINATE [Concomitant]
     Route: 048
  6. MANINIL ^BERLIN-CHEMIE^ [Concomitant]
     Route: 048
  7. PANTOPRAZOLE [Concomitant]
     Route: 048

REACTIONS (1)
  - HAEMATURIA [None]
